FAERS Safety Report 14538466 (Version 1)
Quarter: 2018Q1

REPORT INFORMATION
  Report Type: Spontaneous
  Country: NO (occurrence: NO)
  Receive Date: 20180216
  Receipt Date: 20180216
  Transmission Date: 20180509
  Serious: Yes (Life-Threatening, Hospitalization)
  Sender: FDA-Public Use
  Company Number: NO-CIPLA LTD.-2018NO04004

PATIENT

DRUGS (2)
  1. PENTASA [Suspect]
     Active Substance: MESALAMINE
     Indication: PROCTITIS ULCERATIVE
     Dosage: 1 G, PER DAY
     Route: 054
     Dates: start: 20170913, end: 20171012
  2. BUDESONIDE. [Suspect]
     Active Substance: BUDESONIDE
     Indication: PROCTITIS ULCERATIVE
     Dosage: 1 DF, PER DAY
     Route: 054
     Dates: start: 20170913, end: 20171012

REACTIONS (1)
  - Pulmonary embolism [Recovering/Resolving]

NARRATIVE: CASE EVENT DATE: 20171002
